FAERS Safety Report 8090949-3 (Version None)
Quarter: 2012Q1

REPORT INFORMATION
  Report Type: 
  Country: None (occurrence: None)
  Receive Date: 20120128
  Receipt Date: 20110729
  Transmission Date: 20120608
  Serious: No
  Sender: FDA-Public Use
  Company Number: US-ABBOTT-11P-163-0842872-00

PATIENT
  Sex: Male
  Weight: 71.278 kg

DRUGS (1)
  1. HUMIRA [Suspect]
     Indication: PSORIASIS
     Route: 058
     Dates: start: 20110604

REACTIONS (2)
  - GAIT DISTURBANCE [None]
  - GROIN PAIN [None]
